FAERS Safety Report 23681588 (Version 1)
Quarter: 2024Q1

REPORT INFORMATION
  Report Type: Spontaneous
  Country: US (occurrence: US)
  Receive Date: 20240328
  Receipt Date: 20240328
  Transmission Date: 20240409
  Serious: No
  Sender: FDA-Public Use
  Company Number: US-LEO Pharma-368959

PATIENT
  Age: 64 Year
  Sex: Female

DRUGS (1)
  1. ADBRY [Suspect]
     Active Substance: TRALOKINUMAB-LDRM
     Indication: Dermatitis atopic
     Route: 058

REACTIONS (4)
  - Injection site erythema [Unknown]
  - Injection site hypersensitivity [Unknown]
  - Injection site haemorrhage [Unknown]
  - Injection site swelling [Unknown]

NARRATIVE: CASE EVENT DATE: 20240322
